FAERS Safety Report 4910751-8 (Version None)
Quarter: 2006Q1

REPORT INFORMATION
  Report Type: 
  Country: None (occurrence: None)
  Receive Date: 20060214
  Receipt Date: 20060206
  Transmission Date: 20060701
  Serious: Yes (Other)
  Sender: FDA-Public Use
  Company Number: US-BRISTOL-MYERS SQUIBB COMPANY-13273107

PATIENT
  Age: 51 Year
  Sex: Female
  Weight: 100 kg

DRUGS (6)
  1. TEQUIN [Suspect]
     Indication: BRONCHITIS
  2. HYZAAR [Concomitant]
  3. GLUCOTROL [Concomitant]
  4. METFORMIN HCL [Concomitant]
  5. ACTOS [Concomitant]
  6. PROTONIX [Concomitant]

REACTIONS (1)
  - BLOOD GLUCOSE FLUCTUATION [None]
